FAERS Safety Report 8099510-8 (Version None)
Quarter: 2012Q1

REPORT INFORMATION
  Report Type: 
  Country: None (occurrence: None)
  Receive Date: 20120129
  Receipt Date: 20110915
  Transmission Date: 20120608
  Serious: No
  Sender: FDA-Public Use
  Company Number: US-ABBOTT-11P-163-0855250-00

PATIENT
  Age: 53 Year
  Sex: Female

DRUGS (20)
  1. POTASSIUM [Concomitant]
     Indication: PRODUCT USED FOR UNKNOWN INDICATION
  2. ALPRAZOLAM [Concomitant]
     Indication: PANIC ATTACK
  3. VICODIN [Concomitant]
     Indication: PAIN
  4. HUMIRA [Suspect]
     Indication: RHEUMATOID ARTHRITIS
     Dosage: INITIAL DOSE
     Dates: start: 20110909
  5. ALPRAZOLAM [Concomitant]
     Indication: ANXIETY
  6. VITAMIN D [Concomitant]
     Indication: PRODUCT USED FOR UNKNOWN INDICATION
  7. MELOXICAM [Concomitant]
     Indication: MUSCULOSKELETAL STIFFNESS
  8. FEXOFENADINE [Concomitant]
     Indication: SINUS DISORDER
  9. LOVAZA [Concomitant]
     Indication: PRODUCT USED FOR UNKNOWN INDICATION
  10. TOPROL-XL [Concomitant]
     Indication: HYPERTENSION
  11. LIPITOR [Concomitant]
     Indication: BLOOD CHOLESTEROL INCREASED
     Dosage: AT BEDTIME
  12. ALLOPURINOL [Concomitant]
     Indication: GOUT
  13. BAYER ASA [Concomitant]
     Indication: PRODUCT USED FOR UNKNOWN INDICATION
  14. LOMOTIL [Concomitant]
     Indication: DIARRHOEA
  15. FOLIC ACID [Concomitant]
     Indication: PRODUCT USED FOR UNKNOWN INDICATION
  16. CALCIUM [Concomitant]
     Indication: PRODUCT USED FOR UNKNOWN INDICATION
  17. ASACOL [Concomitant]
     Indication: CROHN'S DISEASE
  18. METHOTREXATE [Concomitant]
     Indication: RHEUMATOID ARTHRITIS
  19. HYZARR [Concomitant]
     Indication: HYPERTENSION
     Dosage: 100/25MG
  20. PROVIGIL [Concomitant]
     Indication: SLEEP APNOEA SYNDROME

REACTIONS (1)
  - INJECTION SITE PAIN [None]
